FAERS Safety Report 19836091 (Version 3)
Quarter: 2022Q1

REPORT INFORMATION
  Report Type: Report from Study
  Country: US (occurrence: US)
  Receive Date: 20210916
  Receipt Date: 20220329
  Transmission Date: 20220423
  Serious: Yes (Hospitalization)
  Sender: FDA-Public Use
  Company Number: US-ABBVIE-21K-163-4079918-00

PATIENT
  Sex: Male

DRUGS (8)
  1. HUMIRA [Suspect]
     Active Substance: ADALIMUMAB
     Indication: Crohn^s disease
     Dosage: DAY 1
     Route: 058
     Dates: start: 20210609, end: 20210609
  2. HUMIRA [Suspect]
     Active Substance: ADALIMUMAB
     Dosage: DAY 15
     Route: 058
     Dates: start: 20210624, end: 20210624
  3. HUMIRA [Suspect]
     Active Substance: ADALIMUMAB
     Route: 058
     Dates: start: 202107, end: 20211201
  4. HUMIRA [Suspect]
     Active Substance: ADALIMUMAB
     Route: 058
     Dates: start: 20211215, end: 202202
  5. HUMIRA [Suspect]
     Active Substance: ADALIMUMAB
     Route: 058
     Dates: start: 20220315
  6. PREDNISONE [Concomitant]
     Active Substance: PREDNISONE
     Indication: Product used for unknown indication
     Dates: start: 202106, end: 2021
  7. PREDNISONE [Concomitant]
     Active Substance: PREDNISONE
     Dates: start: 2021
  8. PROTONIX [Concomitant]
     Active Substance: PANTOPRAZOLE SODIUM
     Indication: Product used for unknown indication

REACTIONS (33)
  - Cellulitis [Recovered/Resolved]
  - Loss of personal independence in daily activities [Not Recovered/Not Resolved]
  - Drug level abnormal [Unknown]
  - Intestinal ulcer [Unknown]
  - Constipation [Unknown]
  - Frequent bowel movements [Not Recovered/Not Resolved]
  - Chills [Unknown]
  - Musculoskeletal disorder [Unknown]
  - Haemorrhoids [Not Recovered/Not Resolved]
  - Gastrointestinal sounds abnormal [Unknown]
  - Constipation [Unknown]
  - Gastrointestinal sounds abnormal [Unknown]
  - Fatigue [Unknown]
  - Malaise [Unknown]
  - Constipation [Unknown]
  - Weight increased [Unknown]
  - Flatulence [Unknown]
  - Skin exfoliation [Not Recovered/Not Resolved]
  - Fluid retention [Recovering/Resolving]
  - Abdominal distension [Not Recovered/Not Resolved]
  - Arthropathy [Unknown]
  - Insomnia [Unknown]
  - Arthralgia [Not Recovered/Not Resolved]
  - Diarrhoea [Unknown]
  - Oropharyngeal pain [Recovered/Resolved]
  - Nausea [Not Recovered/Not Resolved]
  - Discomfort [Unknown]
  - Abdominal pain [Recovered/Resolved]
  - Dyspnoea exertional [Not Recovered/Not Resolved]
  - Sinusitis [Unknown]
  - Vomiting [Recovering/Resolving]
  - Depressed mood [Unknown]
  - Abdominal pain [Unknown]

NARRATIVE: CASE EVENT DATE: 20210101
